FAERS Safety Report 20199774 (Version 1)
Quarter: 2021Q4

REPORT INFORMATION
  Report Type: Spontaneous
  Country: DE (occurrence: DE)
  Receive Date: 20211217
  Receipt Date: 20211217
  Transmission Date: 20220303
  Serious: Yes (Other)
  Sender: FDA-Public Use
  Company Number: DE-Fresenius Kabi-FK202114013

PATIENT
  Age: 75 Year
  Sex: Male

DRUGS (3)
  1. ROPIVACAINE [Suspect]
     Active Substance: ROPIVACAINE
     Indication: Back pain
     Dosage: 4ML OF 10 MG/ML INJECTION
     Route: 037
  2. TRIAMCINOLONE [Concomitant]
     Active Substance: TRIAMCINOLONE
     Indication: Back pain
     Route: 037
  3. SODIUM CHLORIDE [Concomitant]
     Active Substance: SODIUM CHLORIDE
     Indication: Back pain
     Dosage: 0.9 PERCENT
     Route: 037

REACTIONS (2)
  - Incorrect route of product administration [Recovered/Resolved]
  - Therapeutic product effect increased [Recovered/Resolved]
